FAERS Safety Report 11487897 (Version 1)
Quarter: 2015Q3

REPORT INFORMATION
  Report Type: Spontaneous
  Country: TR (occurrence: TR)
  Receive Date: 20150909
  Receipt Date: 20150909
  Transmission Date: 20151125
  Serious: Yes (Hospitalization)
  Sender: FDA-Public Use
  Company Number: TR-PFIZER INC-2015273558

PATIENT
  Age: 27 Year
  Sex: Female

DRUGS (2)
  1. LANSOR [Concomitant]
     Active Substance: LANSOPRAZOLE
     Dosage: UNK, AS NEEDED
  2. DEPO-PROVERA [Suspect]
     Active Substance: MEDROXYPROGESTERONE ACETATE
     Indication: CONTRACEPTION

REACTIONS (4)
  - Weight decreased [Not Recovered/Not Resolved]
  - Boredom [Not Recovered/Not Resolved]
  - Mental disorder [Not Recovered/Not Resolved]
  - Aggression [Not Recovered/Not Resolved]
